FAERS Safety Report 4474099-0 (Version None)
Quarter: 2004Q4

REPORT INFORMATION
  Report Type: 
  Country: None (occurrence: None)
  Receive Date: 20041008
  Receipt Date: 20040916
  Transmission Date: 20050328
  Serious: Yes (Hospitalization)
  Sender: FDA-Public Use
  Company Number: DE_040914226

PATIENT
  Age: 64 Year
  Sex: Female

DRUGS (2)
  1. FORTEO [Suspect]
     Indication: OSTEOPOROSIS
     Dosage: 20 UG DAY
  2. DIGITALIS [Concomitant]

REACTIONS (12)
  - ARRHYTHMIA [None]
  - ATHEROSCLEROSIS [None]
  - CARDIAC ENZYMES INCREASED [None]
  - CAROTID ARTERY DISEASE [None]
  - FALL [None]
  - ISCHAEMIA [None]
  - LOSS OF CONSCIOUSNESS [None]
  - MITRAL VALVE INCOMPETENCE [None]
  - NUCLEAR MAGNETIC RESONANCE IMAGING ABNORMAL [None]
  - PAIN [None]
  - PLEURAL EFFUSION [None]
  - VASODILATATION [None]
